FAERS Safety Report 9013763 (Version 2)
Quarter: 2013Q1

REPORT INFORMATION
  Report Type: Spontaneous
  Country: US (occurrence: US)
  Receive Date: 20130115
  Receipt Date: 20130130
  Transmission Date: 20140127
  Serious: Yes (Disabling, Other)
  Sender: FDA-Public Use
  Company Number: US-009507513-1012USA00468

PATIENT
  Age: 24 Month
  Sex: Female
  Weight: 10.43 kg

DRUGS (2)
  1. SINGULAIR [Suspect]
     Indication: ASTHMA
     Dosage: 4 MG, QD
     Route: 048
     Dates: start: 20091121, end: 20100104
  2. SINGULAIR [Suspect]
     Indication: COUGH

REACTIONS (8)
  - Chills [Unknown]
  - Clostridium difficile colitis [Unknown]
  - Decreased appetite [Unknown]
  - Fungal infection [Unknown]
  - Rectal prolapse [Unknown]
  - Headache [Unknown]
  - Fatigue [Unknown]
  - Diarrhoea [Unknown]
